FAERS Safety Report 12048423 (Version 1)
Quarter: 2016Q1

REPORT INFORMATION
  Report Type: Spontaneous
  Country: CA (occurrence: CA)
  Receive Date: 20160208
  Receipt Date: 20160208
  Transmission Date: 20160526
  Serious: Yes (Life-Threatening, Hospitalization)
  Sender: FDA-Public Use
  Company Number: CA-SA-2016SA021536

PATIENT
  Age: 59 Year
  Sex: Female
  Weight: 70 kg

DRUGS (25)
  1. REMICADE [Suspect]
     Active Substance: INFLIXIMAB
     Indication: CROHN^S DISEASE
     Route: 042
  2. CODEINE [Concomitant]
     Active Substance: CODEINE
     Indication: PAIN
  3. NICODERM CQ [Concomitant]
     Active Substance: NICOTINE
  4. NOVO-GESIC [Concomitant]
     Route: 048
  5. NICODERM CQ [Concomitant]
     Active Substance: NICOTINE
     Dosage: PATCH
  6. SALBUTAMOL [Concomitant]
     Active Substance: ALBUTEROL
     Indication: RESPIRATORY DISORDER
     Route: 048
  7. TYLENOL [Concomitant]
     Active Substance: ACETAMINOPHEN
     Route: 048
  8. BENADRYL [Concomitant]
     Active Substance: DIPHENHYDRAMINE HYDROCHLORIDE
     Route: 042
  9. IRBESARTAN. [Concomitant]
     Active Substance: IRBESARTAN
  10. HYDROCHLOROTHIAZIDE. [Concomitant]
     Active Substance: HYDROCHLOROTHIAZIDE
  11. NYSTATIN. [Concomitant]
     Active Substance: NYSTATIN
     Route: 048
  12. REMICADE [Suspect]
     Active Substance: INFLIXIMAB
     Indication: CROHN^S DISEASE
     Dosage: POWDER FOR?SOLUTION?INTRAVENOUS?1 EVERY 8?WEEK(S)
     Route: 042
  13. DIPHENHYDRAMINE. [Concomitant]
     Active Substance: DIPHENHYDRAMINE
     Route: 042
  14. FLUOXETINE [Concomitant]
     Active Substance: FLUOXETINE HYDROCHLORIDE
  15. RIZATRIPTAN. [Concomitant]
     Active Substance: RIZATRIPTAN
  16. LASIX [Suspect]
     Active Substance: FUROSEMIDE
     Route: 065
  17. ATIVAN [Concomitant]
     Active Substance: LORAZEPAM
     Indication: ANXIETY
  18. FLUOXETINE [Concomitant]
     Active Substance: FLUOXETINE HYDROCHLORIDE
  19. QUETIAPINE [Concomitant]
     Active Substance: QUETIAPINE
  20. ATIVAN [Concomitant]
     Active Substance: LORAZEPAM
     Indication: NERVOUSNESS
  21. CARVEDILOL. [Concomitant]
     Active Substance: CARVEDILOL
  22. CELECOXIB. [Concomitant]
     Active Substance: CELECOXIB
  23. CLOTRIMAZOLE. [Concomitant]
     Active Substance: CLOTRIMAZOLE
     Route: 061
  24. AZATHIOPRINE. [Concomitant]
     Active Substance: AZATHIOPRINE
  25. PANTOPRAZOLE [Concomitant]
     Active Substance: PANTOPRAZOLE SODIUM

REACTIONS (3)
  - Prerenal failure [Unknown]
  - Pleural effusion [Unknown]
  - Lymphadenopathy mediastinal [Unknown]
